FAERS Safety Report 11976625 (Version 2)
Quarter: 2016Q1

REPORT INFORMATION
  Report Type: Spontaneous
  Country: US (occurrence: US)
  Receive Date: 20160129
  Receipt Date: 20160211
  Transmission Date: 20160526
  Serious: No
  Sender: FDA-Public Use
  Company Number: US-BAYER-2016-017952

PATIENT
  Age: 15 Year
  Sex: Male

DRUGS (2)
  1. CLARITIN [Suspect]
     Active Substance: LORATADINE
     Indication: SEASONAL ALLERGY
     Dosage: MAY HAVE GOTTEN 2 DF (TWICE IN MORNING)
     Route: 048
     Dates: start: 20160128, end: 20160128
  2. CLARITIN [Suspect]
     Active Substance: LORATADINE
     Indication: SEASONAL ALLERGY
     Dosage: 1 DF, QD
     Route: 048

REACTIONS (2)
  - Wrong technique in product usage process [None]
  - Product use issue [None]

NARRATIVE: CASE EVENT DATE: 20160128
